FAERS Safety Report 9115097 (Version 1)
Quarter: 2013Q1

REPORT INFORMATION
  Report Type: Spontaneous
  Country: US (occurrence: None)
  Receive Date: 20130220
  Receipt Date: 20130220
  Transmission Date: 20140127
  Serious: Yes (Life-Threatening, Hospitalization)
  Sender: FDA-Public Use
  Company Number: None

PATIENT
  Age: 74 Year
  Sex: Male
  Weight: 7603 kg

DRUGS (1)
  1. LISINOPRIL [Suspect]
     Route: 048
     Dates: start: 20060526, end: 20121123

REACTIONS (1)
  - Angioedema [None]
